FAERS Safety Report 11475529 (Version 1)
Quarter: 2015Q3

REPORT INFORMATION
  Report Type: Spontaneous
  Country: US (occurrence: US)
  Receive Date: 20150909
  Receipt Date: 20150909
  Transmission Date: 20151125
  Serious: No
  Sender: FDA-Public Use
  Company Number: US-ACTELION PHARMACEUTICALS US, INC.-A-NJ2015-115675

PATIENT
  Age: 63 Year
  Sex: Male

DRUGS (8)
  1. VITAMIN C [Concomitant]
     Active Substance: ASCORBIC ACID
  2. MULTIVITAMIN [Concomitant]
     Active Substance: VITAMINS
  3. ASPIRIN. [Concomitant]
     Active Substance: ASPIRIN
  4. HALOBETASOL PROPIONATE. [Concomitant]
     Active Substance: HALOBETASOL PROPIONATE
  5. ACITRETIN. [Concomitant]
     Active Substance: ACITRETIN
  6. VALCHLOR [Suspect]
     Active Substance: MECHLORETHAMINE
     Dosage: UNK
     Route: 061
     Dates: start: 20141203
  7. SIMVASTATIN. [Concomitant]
     Active Substance: SIMVASTATIN
  8. VALCHLOR [Suspect]
     Active Substance: MECHLORETHAMINE
     Indication: MYCOSIS FUNGOIDES
     Dosage: UNK
     Route: 061

REACTIONS (2)
  - Skin irritation [Unknown]
  - Dermatitis [Recovered/Resolved]
